FAERS Safety Report 11201344 (Version 9)
Quarter: 2019Q3

REPORT INFORMATION
  Report Type: Report from Study
  Country: DE (occurrence: DE)
  Receive Date: 20150619
  Receipt Date: 20190827
  Transmission Date: 20191004
  Serious: Yes (Hospitalization)
  Sender: FDA-Public Use
  Company Number: DE-ROCHE-1596262

PATIENT
  Age: 53 Year
  Sex: Female
  Weight: 85 kg

DRUGS (4)
  1. ROACTEMRA [Suspect]
     Active Substance: TOCILIZUMAB
     Indication: RHEUMATOID ARTHRITIS
     Route: 058
     Dates: start: 20150116
  2. ROACTEMRA [Suspect]
     Active Substance: TOCILIZUMAB
     Route: 058
  3. ROACTEMRA [Suspect]
     Active Substance: TOCILIZUMAB
     Route: 058
  4. ROACTEMRA [Suspect]
     Active Substance: TOCILIZUMAB
     Route: 058

REACTIONS (15)
  - Contusion [Not Recovered/Not Resolved]
  - Off label use [Unknown]
  - Pain [Unknown]
  - Fall [Unknown]
  - Impaired healing [Not Recovered/Not Resolved]
  - Product dose omission [Unknown]
  - Contusion [Recovered/Resolved]
  - Femoral neck fracture [Recovered/Resolved]
  - Seroma [Recovered/Resolved]
  - Nasopharyngitis [Not Recovered/Not Resolved]
  - Haemorrhagic diathesis [Recovered/Resolved]
  - Arthralgia [Recovered/Resolved]
  - Incision site impaired healing [Recovered/Resolved]
  - Gastroenteritis viral [Recovered/Resolved]
  - Erythema [Recovered/Resolved]

NARRATIVE: CASE EVENT DATE: 20150116
